FAERS Safety Report 9670292 (Version 1)
Quarter: 2013Q4

REPORT INFORMATION
  Report Type: Spontaneous
  Country: CA (occurrence: CA)
  Receive Date: 20131105
  Receipt Date: 20131105
  Transmission Date: 20140711
  Serious: Yes (Death)
  Sender: FDA-Public Use
  Company Number: CA-GILEAD-2013-0086569

PATIENT
  Age: 10 Year
  Sex: Male

DRUGS (1)
  1. VISTIDE [Suspect]
     Indication: ADENOVIRUS INFECTION

REACTIONS (1)
  - Drug ineffective for unapproved indication [Fatal]
